FAERS Safety Report 6508007-5 (Version None)
Quarter: 2009Q4

REPORT INFORMATION
  Report Type: 
  Country: None (occurrence: None)
  Receive Date: 20091210
  Receipt Date: 20090821
  Transmission Date: 20100525
  Serious: Yes (Hospitalization)
  Sender: FDA-Public Use
  Company Number: CIP09002302

PATIENT
  Age: 59 Year
  Sex: Female

DRUGS (1)
  1. ACTONEL [Suspect]
     Indication: OSTEOPENIA
     Dosage: 150 MG ONE DOSE ONLY, ORAL
     Route: 048
     Dates: start: 20090622, end: 20090622

REACTIONS (3)
  - BACK PAIN [None]
  - MUSCLE SPASMS [None]
  - NON-CARDIAC CHEST PAIN [None]
